FAERS Safety Report 6095210-4 (Version None)
Quarter: 2009Q1

REPORT INFORMATION
  Report Type: 
  Country: None (occurrence: None)
  Receive Date: 20090227
  Receipt Date: 20080213
  Transmission Date: 20090719
  Serious: No
  Sender: FDA-Public Use
  Company Number: A0709361A

PATIENT
  Age: 35 Year
  Sex: Female

DRUGS (5)
  1. LAMICTAL [Suspect]
     Indication: BIPOLAR DISORDER
     Route: 048
     Dates: start: 20071201, end: 20071231
  2. PROZAC [Concomitant]
  3. NEURONTIN [Concomitant]
  4. TRIPANZYM [Concomitant]
  5. RAPTIVA [Concomitant]

REACTIONS (1)
  - RASH [None]
